FAERS Safety Report 7531819-6 (Version None)
Quarter: 2011Q2

REPORT INFORMATION
  Report Type: 
  Country: None (occurrence: None)
  Receive Date: 20110601
  Receipt Date: 20110517
  Transmission Date: 20111010
  Serious: No
  Sender: FDA-Public Use
  Company Number: TUK2011A00058

PATIENT
  Sex: Female

DRUGS (8)
  1. VITAMIN D [Concomitant]
  2. GLICLAZIDE (GLICLAZIDE) [Concomitant]
  3. SIMVASTATIN [Concomitant]
  4. METFORMIN HCL [Concomitant]
  5. ASPIRIN [Concomitant]
  6. BISPHOSPHONATE (BISPHOSPHONATES) [Concomitant]
  7. ACTOS [Suspect]
     Indication: PRODUCT USED FOR UNKNOWN INDICATION
     Dosage: 90 MG (45 MG)
  8. RAMIPRIL [Concomitant]

REACTIONS (3)
  - BONE DENSITY DECREASED [None]
  - OVERDOSE [None]
  - UPPER LIMB FRACTURE [None]
